FAERS Safety Report 11310960 (Version 41)
Quarter: 2023Q2

REPORT INFORMATION
  Report Type: Other
  Country: CA (occurrence: None)
  Receive Date: 20150726
  Receipt Date: 20230501
  Transmission Date: 20230722
  Serious: Yes (Life-Threatening, Hospitalization, Other)
  Sender: FDA-Public Use
  Company Number: CA-ROCHE-1610105

PATIENT
  Age: 47 Year
  Sex: Female
  Weight: 54 kg

DRUGS (32)
  1. RITUXAN [Suspect]
     Active Substance: RITUXIMAB
     Indication: Paraneoplastic pemphigus
     Dosage: PREVIOUS DOSE WAS ON 03/AUG/2017?DATE OF LAST INFUSION: 15/SEP/2020.?PREVIOUS RITUXAN INFUSION WAS A
     Route: 042
     Dates: start: 20150914
  2. RITUXAN [Suspect]
     Active Substance: RITUXIMAB
     Indication: Pemphigus
  3. CELLCEPT [Concomitant]
     Active Substance: MYCOPHENOLATE MOFETIL
     Indication: Pemphigus
     Route: 065
  4. CELLCEPT [Concomitant]
     Active Substance: MYCOPHENOLATE MOFETIL
     Route: 065
     Dates: start: 20150529, end: 20150624
  5. CELLCEPT [Concomitant]
     Active Substance: MYCOPHENOLATE MOFETIL
     Route: 065
  6. PREDNISONE [Concomitant]
     Active Substance: PREDNISONE
     Indication: Pemphigus
     Route: 065
  7. PREDNISONE [Concomitant]
     Active Substance: PREDNISONE
     Route: 065
  8. PREDNISONE [Concomitant]
     Active Substance: PREDNISONE
     Route: 065
  9. SULFAMETHOXAZOLE\TRIMETHOPRIM [Concomitant]
     Active Substance: SULFAMETHOXAZOLE\TRIMETHOPRIM
     Indication: Pneumonia
     Route: 065
     Dates: start: 2019, end: 20191210
  10. SULFAMETHOXAZOLE\TRIMETHOPRIM [Concomitant]
     Active Substance: SULFAMETHOXAZOLE\TRIMETHOPRIM
     Dosage: 800/160 MG MILLIGRAM(S)
     Route: 065
  11. BISOPROLOL [Concomitant]
     Active Substance: BISOPROLOL
  12. HYDROXYCHLOROQUINE [Concomitant]
     Active Substance: HYDROXYCHLOROQUINE
  13. TYLENOL [Concomitant]
     Active Substance: ACETAMINOPHEN
  14. DIPHENHYDRAMINE HYDROCHLORIDE [Concomitant]
     Active Substance: DIPHENHYDRAMINE HYDROCHLORIDE
     Indication: Premedication
     Dosage: VIA G TUBE
     Dates: start: 20150914, end: 20150928
  15. DIPHENHYDRAMINE HYDROCHLORIDE [Concomitant]
     Active Substance: DIPHENHYDRAMINE HYDROCHLORIDE
     Route: 048
     Dates: start: 20160404
  16. ACETAMINOPHEN [Concomitant]
     Active Substance: ACETAMINOPHEN
     Indication: Premedication
     Dosage: VIA G TUBE
     Dates: start: 20150914, end: 20150928
  17. ACETAMINOPHEN [Concomitant]
     Active Substance: ACETAMINOPHEN
     Route: 048
     Dates: start: 20160404
  18. METHYLPREDNISOLONE [Concomitant]
     Active Substance: METHYLPREDNISOLONE
     Indication: Premedication
     Route: 042
     Dates: start: 20150914
  19. ADVAIR HFA [Concomitant]
     Active Substance: FLUTICASONE PROPIONATE\SALMETEROL XINAFOATE
     Indication: Asthma
     Dosage: 25/250MCG
     Dates: start: 20170420
  20. ADVAIR HFA [Concomitant]
     Active Substance: FLUTICASONE PROPIONATE\SALMETEROL XINAFOATE
     Dosage: 2 PUFFS/ 2 TIMES
  21. IPRATROPIUM [Concomitant]
     Active Substance: IPRATROPIUM
     Dosage: 20 MCG
     Dates: start: 20170719
  22. FLUTICASONE PROPIONATE\SALMETEROL XINAFOATE [Concomitant]
     Active Substance: FLUTICASONE PROPIONATE\SALMETEROL XINAFOATE
  23. MEPRON (CANADA) [Concomitant]
     Dates: start: 20191211, end: 201912
  24. QUETIAPINE [Concomitant]
     Active Substance: QUETIAPINE
  25. RISEDRONATE SODIUM [Concomitant]
     Active Substance: RISEDRONATE SODIUM
  26. THALIDOMIDE [Concomitant]
     Active Substance: THALIDOMIDE
     Indication: Pemphigus
  27. LANSOPRAZOLE [Concomitant]
     Active Substance: LANSOPRAZOLE
  28. MONTELUKAST [Concomitant]
     Active Substance: MONTELUKAST SODIUM
     Indication: Asthma
  29. PREDNISOLONE [Concomitant]
     Active Substance: PREDNISOLONE
     Dosage: 5 TIMES, SWISH AND SPLIT
  30. ATROVENT [Concomitant]
     Active Substance: IPRATROPIUM BROMIDE
     Indication: Asthma
  31. COMPOUND CHLORHEXIDINE GARGLE [Concomitant]
  32. CYCLOSPORINE [Concomitant]
     Active Substance: CYCLOSPORINE

REACTIONS (36)
  - Immune system disorder [Unknown]
  - Pulmonary sepsis [Recovered/Resolved]
  - Pemphigus [Not Recovered/Not Resolved]
  - Pneumonia [Not Recovered/Not Resolved]
  - Staphylococcal infection [Not Recovered/Not Resolved]
  - Hypotension [Unknown]
  - Oxygen saturation decreased [Unknown]
  - Heart rate increased [Unknown]
  - Hyperhidrosis [Unknown]
  - Respiratory rate increased [Unknown]
  - Dizziness [Recovered/Resolved]
  - Dyspnoea exertional [Unknown]
  - Cough [Unknown]
  - Dyspnoea [Unknown]
  - Treatment failure [Unknown]
  - Mouth ulceration [Not Recovered/Not Resolved]
  - Off label use [Unknown]
  - Blood pressure fluctuation [Unknown]
  - Pneumonia [Recovered/Resolved]
  - Dizziness [Unknown]
  - Nausea [Unknown]
  - Dyspnoea [Unknown]
  - Blood pressure diastolic decreased [Unknown]
  - Weight increased [Unknown]
  - Blood pressure diastolic abnormal [Unknown]
  - Vascular access site pain [Unknown]
  - Pemphigus [Unknown]
  - Weight decreased [Unknown]
  - Hyperchlorhydria [Unknown]
  - Heart rate increased [Unknown]
  - Blood pressure systolic decreased [Unknown]
  - Blood pressure systolic abnormal [Unknown]
  - Complication associated with device [Unknown]
  - Oesophageal obstruction [Unknown]
  - Haemorrhage [Recovered/Resolved]
  - Heart rate increased [Unknown]

NARRATIVE: CASE EVENT DATE: 20150914
